FAERS Safety Report 12442925 (Version 1)
Quarter: 2016Q2

REPORT INFORMATION
  Report Type: Spontaneous
  Country: US (occurrence: None)
  Receive Date: 20160606
  Receipt Date: 20160606
  Transmission Date: 20160815
  Serious: Yes (Disabling)
  Sender: FDA-Public Use
  Company Number: None

PATIENT
  Age: 11 Year
  Sex: Female
  Weight: 47.17 kg

DRUGS (5)
  1. ACETAMINOPHIN [Concomitant]
  2. IBUPROFEN. [Concomitant]
     Active Substance: IBUPROFEN
  3. CALCAREA PHOSPORICA (HOMEOPATHIC) [Concomitant]
  4. MONTELUKAST SOD [Suspect]
     Active Substance: MONTELUKAST SODIUM
     Indication: MULTIPLE ALLERGIES
     Dosage: 30 TABLET(S) ONCE A DAY TAKEN BY MOUTH
     Route: 048
  5. MULTIVITAMINS [Concomitant]
     Active Substance: VITAMINS

REACTIONS (13)
  - Food allergy [None]
  - Anxiety [None]
  - Pain [None]
  - Pyrexia [None]
  - Mood swings [None]
  - Reaction to azo-dyes [None]
  - Insomnia [None]
  - Amnesia [None]
  - Otorrhoea [None]
  - Anger [None]
  - Aggression [None]
  - Personality change [None]
  - Asterixis [None]

NARRATIVE: CASE EVENT DATE: 20160501
